FAERS Safety Report 20003287 (Version 1)
Quarter: 2021Q4

REPORT INFORMATION
  Report Type: Spontaneous
  Country: FR (occurrence: FR)
  Receive Date: 20211027
  Receipt Date: 20211027
  Transmission Date: 20220303
  Serious: Yes (Other)
  Sender: FDA-Public Use
  Company Number: None

PATIENT
  Age: 36 Year
  Sex: Male

DRUGS (5)
  1. LYRICA [Suspect]
     Active Substance: PREGABALIN
     Dosage: UP TO 600 MG / DAY
     Route: 048
  2. CANNABIS SATIVA SUBSP. INDICA TOP [Suspect]
     Active Substance: CANNABIS SATIVA SUBSP. INDICA TOP
     Dosage: UNK, DAILY
     Route: 055
  3. COCAINE [Suspect]
     Active Substance: COCAINE
     Dosage: 1 G, 1X/DAY
     Route: 055
  4. COCAINE [Suspect]
     Active Substance: COCAINE
     Dosage: 1 G, 1X/DAY
     Route: 045
  5. VALIUM [Suspect]
     Active Substance: DIAZEPAM
     Dosage: UP TO 60MG/DAY
     Route: 048

REACTIONS (2)
  - Drug dependence [Not Recovered/Not Resolved]
  - Drug abuse [Unknown]
